FAERS Safety Report 10421877 (Version 1)
Quarter: 2014Q3

REPORT INFORMATION
  Report Type: Spontaneous
  Country: DK (occurrence: DK)
  Receive Date: 20140901
  Receipt Date: 20140901
  Transmission Date: 20150326
  Serious: Yes (Hospitalization)
  Sender: FDA-Public Use
  Company Number: DK-ACCORD-025596

PATIENT
  Age: 23 Year
  Sex: Male

DRUGS (2)
  1. LAMICTAL [Suspect]
     Active Substance: LAMOTRIGINE
     Indication: BIPOLAR I DISORDER
     Dosage: STRENGTH: 25 MG
     Route: 048
     Dates: start: 20140815
  2. QUETIAPIN ACCORD [Suspect]
     Active Substance: QUETIAPINE
     Indication: TACHYPHRENIA
     Dosage: DOSE: 50 MG, STRENGTH: 25 MG
     Route: 048
     Dates: start: 20140817

REACTIONS (1)
  - Respiratory alkalosis [Recovered/Resolved]

NARRATIVE: CASE EVENT DATE: 20140817
